FAERS Safety Report 9092832 (Version 1)
Quarter: 2013Q1

REPORT INFORMATION
  Report Type: Report from Study
  Country: US (occurrence: US)
  Receive Date: 20130131
  Receipt Date: 20130131
  Transmission Date: 20140127
  Serious: No
  Sender: FDA-Public Use
  Company Number: US-ABBOTT-12P-163-1002911-00

PATIENT
  Age: 55 None
  Sex: Female

DRUGS (2)
  1. HUMIRA [Suspect]
     Indication: RHEUMATOID ARTHRITIS
     Dosage: PFS
     Route: 058
     Dates: start: 2005, end: 2008
  2. HUMIRA [Suspect]
     Dosage: PEN
     Route: 058
     Dates: start: 2008

REACTIONS (8)
  - Device malfunction [Unknown]
  - Injection site extravasation [Unknown]
  - Incorrect dose administered [Unknown]
  - Injection site pain [Not Recovered/Not Resolved]
  - Arthralgia [Not Recovered/Not Resolved]
  - Device malfunction [Unknown]
  - Injection site extravasation [Unknown]
  - Incorrect dose administered [Unknown]
